FAERS Safety Report 10230052 (Version 1)
Quarter: 2014Q2

REPORT INFORMATION
  Report Type: Spontaneous
  Country: US (occurrence: US)
  Receive Date: 20140611
  Receipt Date: 20140611
  Transmission Date: 20141212
  Serious: No
  Sender: FDA-Public Use
  Company Number: US-009507513-1405USA005797

PATIENT
  Sex: Male

DRUGS (5)
  1. CLARITIN ORAL SOLUTION [Suspect]
     Indication: SEASONAL ALLERGY
     Dosage: UNK, UNKNOWN
     Route: 048
  2. CLARITIN ORAL SOLUTION [Suspect]
     Indication: EYE PRURITUS
  3. CLARITIN ORAL SOLUTION [Suspect]
     Indication: LACRIMATION INCREASED
  4. CLARITIN ORAL SOLUTION [Suspect]
     Indication: RHINORRHOEA
  5. CLARITIN ORAL SOLUTION [Suspect]
     Indication: THROAT IRRITATION

REACTIONS (2)
  - Restlessness [Unknown]
  - Unevaluable event [Unknown]
